FAERS Safety Report 14280286 (Version 1)
Quarter: 2017Q4

REPORT INFORMATION
  Report Type: Spontaneous
  Country: US (occurrence: US)
  Receive Date: 20171212
  Receipt Date: 20171212
  Transmission Date: 20180321
  Serious: Yes (Hospitalization)
  Sender: FDA-Public Use
  Company Number: None

PATIENT
  Sex: Male
  Weight: 144 kg

DRUGS (3)
  1. HYDROCHLORTHYZIDE [Concomitant]
  2. VIBERZI [Suspect]
     Active Substance: ELUXADOLINE
     Indication: IRRITABLE BOWEL SYNDROME
     Dosage: ?          QUANTITY:1 TABLET(S);?
     Route: 048
  3. METOPEROL [Concomitant]

REACTIONS (4)
  - Abdominal pain upper [None]
  - Contraindicated drug prescribed [None]
  - Pancreatitis [None]
  - Pancreatitis chronic [None]

NARRATIVE: CASE EVENT DATE: 20170811
